FAERS Safety Report 6340181-6 (Version None)
Quarter: 2009Q3

REPORT INFORMATION
  Report Type: 
  Country: None (occurrence: None)
  Receive Date: 20090903
  Receipt Date: 20090824
  Transmission Date: 20100115
  Serious: Yes (Other)
  Sender: FDA-Public Use
  Company Number: DE-ABBOTT-09P-062-0593169-00

PATIENT
  Sex: Female
  Weight: 95 kg

DRUGS (1)
  1. REDUCTIL 15MG [Suspect]
     Indication: DRUG USE FOR UNKNOWN INDICATION
     Route: 048
     Dates: start: 20080601, end: 20090401

REACTIONS (3)
  - EPILEPSY [None]
  - HYPOGLYCAEMIA [None]
  - SYNCOPE [None]
